FAERS Safety Report 8432532-3 (Version None)
Quarter: 2012Q2

REPORT INFORMATION
  Report Type: 
  Country: None (occurrence: None)
  Receive Date: 20120613
  Receipt Date: 20120509
  Transmission Date: 20120825
  Serious: Yes (Other)
  Sender: FDA-Public Use
  Company Number: JP-GENZYME-FLUD-1001476

PATIENT

DRUGS (4)
  1. TACROLIMUS [Concomitant]
     Indication: PROPHYLAXIS AGAINST GRAFT VERSUS HOST DISEASE
     Dosage: UNK
     Route: 065
     Dates: end: 20101201
  2. BUSULFAN [Concomitant]
     Indication: BONE MARROW CONDITIONING REGIMEN
     Dosage: 130 MG/M2, UNK
     Route: 065
  3. MYCOPHENOLATE MOFETIL [Concomitant]
     Indication: PROPHYLAXIS AGAINST GRAFT VERSUS HOST DISEASE
     Dosage: UNK
     Route: 065
     Dates: end: 20101201
  4. FLUDARA [Suspect]
     Indication: BONE MARROW CONDITIONING REGIMEN
     Dosage: 40 MG/M2, QD
     Route: 065
     Dates: start: 20100101, end: 20100101

REACTIONS (5)
  - DEVICE RELATED INFECTION [None]
  - ACUTE GRAFT VERSUS HOST DISEASE [None]
  - PNEUMONIA BACTERIAL [None]
  - CYSTITIS HAEMORRHAGIC [None]
  - CYTOMEGALOVIRUS TEST POSITIVE [None]
